FAERS Safety Report 9851133 (Version 1)
Quarter: 2014Q1

REPORT INFORMATION
  Report Type: Spontaneous
  Country: AU (occurrence: AU)
  Receive Date: 20140128
  Receipt Date: 20140128
  Transmission Date: 20141002
  Serious: Yes (Other)
  Sender: FDA-Public Use
  Company Number: AU-WATSON-2014-00739

PATIENT
  Age: 52 Year
  Sex: Female

DRUGS (1)
  1. PROMETHAZINE (UNKNOWN) [Suspect]
     Indication: ALLERGY TO ARTHROPOD STING
     Dosage: 25 MG, SINGLE
     Route: 042

REACTIONS (1)
  - Blood pressure systolic decreased [Unknown]
